FAERS Safety Report 18432707 (Version 1)
Quarter: 2020Q4

REPORT INFORMATION
  Report Type: Spontaneous
  Country: US (occurrence: US)
  Receive Date: 20201027
  Receipt Date: 20201027
  Transmission Date: 20210114
  Serious: Yes (Death, Other)
  Sender: FDA-Public Use
  Company Number: US-SA-2020SA299463

PATIENT

DRUGS (1)
  1. ELITEK [Suspect]
     Active Substance: RASBURICASE
     Indication: BLOOD URIC ACID ABNORMAL
     Dosage: 1 DF, 1X
     Route: 041

REACTIONS (5)
  - Gait inability [Unknown]
  - Pyrexia [Unknown]
  - Haemoptysis [Unknown]
  - Death [Fatal]
  - Infusion related reaction [Unknown]
